FAERS Safety Report 6550389-2 (Version None)
Quarter: 2010Q1

REPORT INFORMATION
  Report Type: 
  Country: None (occurrence: None)
  Receive Date: 20100125
  Receipt Date: 20100113
  Transmission Date: 20100710
  Serious: Yes (Hospitalization)
  Sender: FDA-Public Use
  Company Number: JP-PFIZER INC-2010005272

PATIENT
  Age: 80 Year
  Sex: Male
  Weight: 58.5 kg

DRUGS (10)
  1. SUNITINIB MALATE [Suspect]
     Indication: RENAL CELL CARCINOMA
     Dosage: 37.5 MG, 1X/DAY (TDD 37.5 MG)
     Route: 048
     Dates: start: 20091008, end: 20091022
  2. FLIVAS [Concomitant]
     Dosage: UNK
     Route: 048
  3. LASIX [Concomitant]
     Dosage: UNK
     Route: 042
     Dates: start: 20091024, end: 20091029
  4. ZOLPIDEM TARTRATE [Concomitant]
     Route: 048
     Dates: start: 20091011, end: 20091014
  5. EBRANTIL [Concomitant]
     Dosage: UNK
     Route: 048
     Dates: start: 20091020
  6. CHLORMADINONE ACETATE TAB [Concomitant]
     Route: 048
     Dates: start: 20091020, end: 20091105
  7. SENNOSIDE A+B CALCIUM [Concomitant]
     Dosage: UNK
     Route: 048
     Dates: start: 20091022
  8. GLYCYRON [Concomitant]
     Route: 048
     Dates: start: 20091024, end: 20091102
  9. MAXIPIME [Concomitant]
     Route: 042
     Dates: start: 20091020, end: 20091022
  10. MAGNESIUM OXIDE [Concomitant]
     Dosage: UNK
     Route: 048
     Dates: start: 20091025

REACTIONS (1)
  - HYPOALBUMINAEMIA [None]
